FAERS Safety Report 24985653 (Version 2)
Quarter: 2025Q2

REPORT INFORMATION
  Report Type: Spontaneous
  Country: NZ (occurrence: NZ)
  Receive Date: 20250219
  Receipt Date: 20250408
  Transmission Date: 20250716
  Serious: Yes (Hospitalization)
  Sender: ROCHE
  Company Number: NZ-ROCHE-10000208926

PATIENT
  Age: 77 Year
  Sex: Male

DRUGS (2)
  1. ROZLYTREK [Suspect]
     Active Substance: ENTRECTINIB
     Indication: Lung neoplasm malignant
     Route: 048
     Dates: start: 202501
  2. ROZLYTREK [Suspect]
     Active Substance: ENTRECTINIB
     Route: 048

REACTIONS (4)
  - Off label use [Unknown]
  - Constipation [Recovered/Resolved]
  - Dyspnoea [Recovered/Resolved]
  - Hyponatraemia [Recovered/Resolved]

NARRATIVE: CASE EVENT DATE: 20250115
